FAERS Safety Report 16576592 (Version 1)
Quarter: 2019Q3

REPORT INFORMATION
  Report Type: Spontaneous
  Country: US (occurrence: US)
  Receive Date: 20190716
  Receipt Date: 20190716
  Transmission Date: 20191004
  Serious: Yes (Death)
  Sender: FDA-Public Use
  Company Number: US-SUN PHARMACEUTICAL INDUSTRIES LTD-2019R1-213737

PATIENT
  Age: 57 Year
  Sex: Male

DRUGS (1)
  1. DEXAMETHASONE. [Suspect]
     Active Substance: DEXAMETHASONE
     Indication: MENINGIOMA
     Dosage: UNK
     Route: 065

REACTIONS (2)
  - Strongyloidiasis [Fatal]
  - Gastrointestinal haemorrhage [Fatal]
